FAERS Safety Report 10721283 (Version 1)
Quarter: 2015Q1

REPORT INFORMATION
  Report Type: Spontaneous
  Country: FR (occurrence: FR)
  Receive Date: 20150119
  Receipt Date: 20150119
  Transmission Date: 20150721
  Serious: Yes (Hospitalization)
  Sender: FDA-Public Use
  Company Number: FR-SA-2015SA005024

PATIENT
  Age: 91 Year
  Sex: Female

DRUGS (11)
  1. XANAX [Concomitant]
     Active Substance: ALPRAZOLAM
     Dosage: STRENGTH: 0.25
  2. LEVOTHYROX [Concomitant]
     Active Substance: LEVOTHYROXINE
     Dosage: 125 MCG
     Route: 048
  3. LASILIX [Suspect]
     Active Substance: FUROSEMIDE
     Dosage: 40 MG
     Route: 048
  4. SEROPLEX [Suspect]
     Active Substance: ESCITALOPRAM OXALATE
     Dosage: 10 MG; TAB
     Route: 048
  5. TANGANIL [Concomitant]
     Active Substance: ACETYLLEUCINE
     Route: 048
  6. DOLIPRANE [Concomitant]
     Active Substance: ACETAMINOPHEN
     Route: 048
  7. SERESTA [Suspect]
     Active Substance: OXAZEPAM
     Dosage: 50 MG; TAB
     Route: 048
     Dates: end: 201405
  8. MOPRAL [Concomitant]
     Active Substance: OMEPRAZOLE SODIUM
     Route: 048
  9. LEXOMIL [Suspect]
     Active Substance: BROMAZEPAM
     Route: 048
     Dates: end: 201405
  10. PRETERAX [Suspect]
     Active Substance: INDAPAMIDE\PERINDOPRIL
     Route: 048
  11. DIFFU K [Concomitant]
     Active Substance: POTASSIUM CHLORIDE
     Dosage: 600 MG
     Route: 048

REACTIONS (1)
  - Fall [Recovered/Resolved]

NARRATIVE: CASE EVENT DATE: 20140512
